FAERS Safety Report 9184735 (Version 3)
Quarter: 2013Q2

REPORT INFORMATION
  Report Type: Spontaneous
  Country: IN (occurrence: IN)
  Receive Date: 20130324
  Receipt Date: 20130412
  Transmission Date: 20140414
  Serious: Yes (Hospitalization)
  Sender: FDA-Public Use
  Company Number: PHHY2013IN027603

PATIENT
  Age: 49 Year
  Sex: Male

DRUGS (16)
  1. SIMULECT [Suspect]
     Indication: PROPHYLAXIS AGAINST TRANSPLANT REJECTION
     Dosage: 20 MG, UNK
     Dates: start: 20130106
  2. SIMULECT [Suspect]
     Dosage: 20 MG, UNK
     Dates: start: 20130111
  3. TACROLIMUS [Concomitant]
     Indication: IMMUNOSUPPRESSION
  4. MYCOPHENOLATE [Concomitant]
     Indication: IMMUNOSUPPRESSION
  5. STEROIDS NOS [Concomitant]
     Indication: IMMUNOSUPPRESSION
  6. WYSOLONE [Concomitant]
     Dosage: 2 DF (1-1 / 2-0)
  7. PAN-D [Concomitant]
     Dosage: 2 DF(1-0-1) (BEFORE FOOD)
  8. CELLCEPT [Concomitant]
     Dosage: 2 DF (1-0-1)
  9. AMLONG [Concomitant]
     Dosage: 2 DF (1-0-1)
  10. ARKAMIN [Concomitant]
     Dosage: 3 DF,(1-1-1)
  11. PANGRAF [Concomitant]
     Dosage: 2 DF,(1-0-1)
  12. FEFOL [Concomitant]
     Dosage: 1 DF (0-1-0)
  13. BECOSULES [Concomitant]
     Dosage: 1 DF (1-0-0)
  14. BACTRIM DS [Concomitant]
     Dosage: 0.5 DF (0-0-1/2)
  15. AUGMENTIN DUO [Concomitant]
     Dosage: 2 DF (1-0-1 X 04 DAYS)
  16. GLYNASE [Concomitant]
     Dosage: 0.5 DF (1/2-0-0)

REACTIONS (7)
  - Kidney transplant rejection [Unknown]
  - Oliguria [Unknown]
  - Blood creatinine increased [Unknown]
  - Complications of transplanted kidney [Unknown]
  - Renal injury [Unknown]
  - Renal tubular necrosis [Unknown]
  - Postoperative wound complication [Unknown]
